FAERS Safety Report 7419221-9 (Version None)
Quarter: 2011Q2

REPORT INFORMATION
  Report Type: 
  Country: None (occurrence: None)
  Receive Date: 20110415
  Receipt Date: 20110406
  Transmission Date: 20111010
  Serious: Yes (Hospitalization)
  Sender: FDA-Public Use
  Company Number: FR-ASTRAZENECA-2011SE20380

PATIENT
  Sex: Male

DRUGS (10)
  1. PERFALGAN [Suspect]
     Route: 042
     Dates: start: 20100531
  2. LOVENOX [Suspect]
     Route: 058
     Dates: start: 20100531
  3. AUGMENTIN [Concomitant]
     Indication: INFECTION
     Route: 048
     Dates: start: 20100531
  4. SERESTA [Concomitant]
     Route: 048
  5. CONTRAMAL [Suspect]
     Route: 048
     Dates: start: 20100531
  6. XATRAL [Concomitant]
     Route: 048
  7. MORPHINE [Suspect]
     Dosage: AS REQUIRED
     Route: 048
     Dates: start: 20100531
  8. NEXIUM [Suspect]
     Indication: ABDOMINAL PAIN UPPER
     Route: 048
     Dates: start: 20100531
  9. PHENOXYMETHYL PENICILLIN [Suspect]
     Indication: INFECTION PROPHYLAXIS
     Route: 048
     Dates: start: 20100601, end: 20100605
  10. DEPAKENE [Concomitant]
     Indication: EPILEPSY
     Route: 048

REACTIONS (1)
  - TOXIC SKIN ERUPTION [None]
